FAERS Safety Report 9370588 (Version 1)
Quarter: 2013Q2

REPORT INFORMATION
  Report Type: Spontaneous
  Country: US (occurrence: US)
  Receive Date: 20130626
  Receipt Date: 20130626
  Transmission Date: 20140414
  Serious: No
  Sender: FDA-Public Use
  Company Number: US-009507513-1304USA014193

PATIENT
  Age: 9 Year
  Sex: Female
  Weight: 63.49 kg

DRUGS (1)
  1. CLARITIN [Suspect]
     Indication: NASOPHARYNGITIS
     Dosage: 10 MG, TID
     Route: 048
     Dates: start: 20130410

REACTIONS (2)
  - Accidental overdose [Recovering/Resolving]
  - Off label use [Unknown]
